FAERS Safety Report 7672866-3 (Version None)
Quarter: 2011Q3

REPORT INFORMATION
  Report Type: 
  Country: None (occurrence: None)
  Receive Date: 20110809
  Receipt Date: 20110707
  Transmission Date: 20111222
  Serious: Yes (Hospitalization)
  Sender: FDA-Public Use
  Company Number: PHHY2011US67777

PATIENT
  Sex: Female
  Weight: 129 kg

DRUGS (6)
  1. PRAVASTATIN [Concomitant]
     Dosage: 20 MG, UNK
  2. RANITIDINE [Concomitant]
  3. RECLAST [Suspect]
     Indication: OSTEOPOROSIS
     Dosage: YEARLY
     Route: 042
     Dates: start: 20070401, end: 20090301
  4. NAPROXEN [Concomitant]
  5. CALCIUM CARBONATE [Concomitant]
  6. VITAMIN D [Concomitant]

REACTIONS (3)
  - FEMUR FRACTURE [None]
  - FALL [None]
  - BONE DENSITY ABNORMAL [None]
